FAERS Safety Report 26043205 (Version 3)
Quarter: 2025Q4

REPORT INFORMATION
  Report Type: Report from Study
  Country: US (occurrence: US)
  Receive Date: 20251113
  Receipt Date: 20251204
  Transmission Date: 20260118
  Serious: Yes (Other)
  Sender: GILEAD
  Company Number: US-GILEAD-2025-0735861

PATIENT
  Age: 45 Year
  Sex: Female

DRUGS (6)
  1. AMBRISENTAN [Suspect]
     Active Substance: AMBRISENTAN
     Indication: Pulmonary arterial hypertension
     Dosage: 10MG BY MOUTH 1 TIME A DAY
     Route: 048
     Dates: start: 20250514
  2. AMBRISENTAN [Suspect]
     Active Substance: AMBRISENTAN
     Dosage: 10MG BY MOUTH 1 TIME A DAY
     Route: 048
     Dates: start: 202405
  3. WINREVAIR [Suspect]
     Active Substance: SOTATERCEPT-CSRK
     Indication: Pulmonary arterial hypertension
     Dosage: 1.2ML UNDER THE SKIN EVERY 3 WEEKS
     Route: 058
     Dates: start: 20250908
  4. WINREVAIR [Suspect]
     Active Substance: SOTATERCEPT-CSRK
     Dosage: 1.2ML SUBCUTANEOUS EVERY 3 WEEKS
     Route: 058
     Dates: start: 202509
  5. UPTRAVI [Suspect]
     Active Substance: SELEXIPAG
     Indication: Pulmonary arterial hypertension
     Dosage: 1600MCG BY MOUTH 2 TIMES A DAY
     Route: 048
     Dates: start: 20221116
  6. UPTRAVI [Suspect]
     Active Substance: SELEXIPAG
     Dosage: 1600MCG BY MOUTH 2 TIMES A DAY
     Route: 048
     Dates: start: 202211

REACTIONS (11)
  - Haematochezia [Recovered/Resolved]
  - Dyspnoea exertional [Not Recovered/Not Resolved]
  - Paraesthesia [Unknown]
  - Hypoaesthesia [Unknown]
  - Tachycardia [Not Recovered/Not Resolved]
  - Joint instability [Unknown]
  - Dizziness [Unknown]
  - Nausea [Unknown]
  - Epistaxis [Recovered/Resolved]
  - Haemoglobin increased [Not Recovered/Not Resolved]
  - Laboratory test abnormal [Not Recovered/Not Resolved]

NARRATIVE: CASE EVENT DATE: 20251105
